FAERS Safety Report 23812807 (Version 3)
Quarter: 2024Q2

REPORT INFORMATION
  Report Type: Spontaneous
  Country: CA (occurrence: CA)
  Receive Date: 20240503
  Receipt Date: 20240610
  Transmission Date: 20240715
  Serious: Yes (Other)
  Sender: FDA-Public Use
  Company Number: CA-CELLTRION INC.-2024CA010152

PATIENT

DRUGS (3)
  1. INFLECTRA [Suspect]
     Active Substance: INFLIXIMAB-DYYB
     Indication: Crohn^s disease
     Dosage: 600 MG, INDUCTION AT 0,2,6 WEEK THEN EVERY 8 WEEKS
     Route: 042
     Dates: start: 20240227
  2. INFLECTRA [Suspect]
     Active Substance: INFLIXIMAB-DYYB
     Dosage: 600 MG, INDUCTION AT 0,2,6 WEEK THEN EVERY 8 WEEKS (600 MG, EVERY 4 WEEKS)
     Route: 042
     Dates: start: 20240409
  3. INFLECTRA [Suspect]
     Active Substance: INFLIXIMAB-DYYB
     Dosage: 600 MG, INDUCTION AT 0,2,6 WEEK THEN EVERY 8 WEEKS (600MG, EVERY 6 WEEKS)
     Route: 042
     Dates: start: 20240521

REACTIONS (3)
  - Blood pressure increased [Recovering/Resolving]
  - Condition aggravated [Not Recovered/Not Resolved]
  - Off label use [Unknown]

NARRATIVE: CASE EVENT DATE: 20240521
